FAERS Safety Report 8105609-X (Version None)
Quarter: 2012Q1

REPORT INFORMATION
  Report Type: 
  Country: None (occurrence: None)
  Receive Date: 20120201
  Receipt Date: 20120123
  Transmission Date: 20120608
  Serious: Yes (Other)
  Sender: FDA-Public Use
  Company Number: US-ASTRAZENECA-2011SE70301

PATIENT
  Sex: Female

DRUGS (8)
  1. FLANAX [Concomitant]
  2. CLONOPIN [Concomitant]
  3. SEROQUEL XR [Suspect]
     Indication: INSOMNIA
     Route: 048
     Dates: start: 20070101
  4. ASPIRIN [Concomitant]
     Dosage: DAILY
     Dates: start: 20090101
  5. SEROQUEL XR [Suspect]
     Indication: BIPOLAR DISORDER
     Route: 048
     Dates: start: 20070101
  6. CHOLESTEROL LOWERING DRUG [Concomitant]
  7. SEROQUEL XR [Suspect]
     Indication: DEPRESSION
     Route: 048
     Dates: start: 20070101
  8. PLAVIX [Concomitant]

REACTIONS (10)
  - ARTERIAL OCCLUSIVE DISEASE [None]
  - BIPOLAR DISORDER [None]
  - MYOCARDIAL INFARCTION [None]
  - DEPRESSION [None]
  - INSOMNIA [None]
  - OFF LABEL USE [None]
  - DRUG INEFFECTIVE [None]
  - LUNG DISORDER [None]
  - ARTERIOSCLEROSIS [None]
  - CARDIAC DISORDER [None]
